FAERS Safety Report 23835474 (Version 1)
Quarter: 2024Q2

REPORT INFORMATION
  Report Type: Spontaneous
  Country: ES (occurrence: ES)
  Receive Date: 20240509
  Receipt Date: 20240509
  Transmission Date: 20240716
  Serious: No
  Sender: FDA-Public Use
  Company Number: ES-ALKEM LABORATORIES LIMITED-ES-ALKEM-2023-12446

PATIENT
  Age: 33 Year
  Sex: Male

DRUGS (1)
  1. AZATHIOPRINE [Suspect]
     Active Substance: AZATHIOPRINE
     Indication: Hidradenitis
     Dosage: 0.50 MILLIGRAM/KILOGRAM
     Route: 065

REACTIONS (1)
  - Therapy partial responder [Unknown]
